FAERS Safety Report 24110259 (Version 7)
Quarter: 2024Q4

REPORT INFORMATION
  Report Type: Spontaneous
  Country: JP (occurrence: JP)
  Receive Date: 20240718
  Receipt Date: 20241219
  Transmission Date: 20250115
  Serious: Yes (Hospitalization, Other)
  Sender: MERCK
  Company Number: JP-MSD-M2024-27210

PATIENT
  Age: 67 Year
  Sex: Male

DRUGS (1)
  1. KEYTRUDA [Suspect]
     Active Substance: PEMBROLIZUMAB
     Indication: Transitional cell carcinoma
     Dosage: 200 MILLIGRAM, Q3W
     Route: 041
     Dates: start: 20240507, end: 20240925

REACTIONS (10)
  - Tumour pseudoprogression [Recovered/Resolved]
  - Malignant neoplasm progression [Not Recovered/Not Resolved]
  - Spinal compression fracture [Unknown]
  - C-reactive protein increased [Recovered/Resolved]
  - White blood cell count increased [Recovered/Resolved]
  - Lymphoedema [Recovered/Resolved]
  - Cortisol decreased [Recovered/Resolved]
  - Blood corticotrophin decreased [Recovered/Resolved]
  - KL-6 increased [Recovered/Resolved]
  - Erythema [Recovered/Resolved]

NARRATIVE: CASE EVENT DATE: 20240529
